FAERS Safety Report 6074477-2 (Version None)
Quarter: 2009Q1

REPORT INFORMATION
  Report Type: 
  Country: None (occurrence: None)
  Receive Date: 20090206
  Receipt Date: 20090126
  Transmission Date: 20090719
  Serious: Yes (Hospitalization)
  Sender: FDA-Public Use
  Company Number: 2009-00093

PATIENT
  Sex: Male

DRUGS (6)
  1. VELCADE [Suspect]
     Indication: PLASMACYTOMA
     Dosage: INTRAVENOUS
     Route: 042
     Dates: start: 20080101
  2. METOPROLOL SUCCINATE [Concomitant]
  3. FURESE (FUROSEMIDE) [Concomitant]
  4. SIMVASTATIN [Concomitant]
  5. AMLODIPINE [Concomitant]
  6. NEXIUM [Concomitant]

REACTIONS (2)
  - BLISTER [None]
  - URTICARIA [None]
